FAERS Safety Report 12440453 (Version 4)
Quarter: 2016Q3

REPORT INFORMATION
  Report Type: Spontaneous
  Country: GB (occurrence: GB)
  Receive Date: 20160606
  Receipt Date: 20160830
  Transmission Date: 20161109
  Serious: Yes (Other)
  Sender: FDA-Public Use
  Company Number: PHHY2016GB073003

PATIENT
  Age: 36 Year
  Sex: Male
  Weight: 73 kg

DRUGS (6)
  1. DOVOBET [Suspect]
     Active Substance: BETAMETHASONE\CALCIPOTRIENE
     Indication: PRURITUS
     Route: 065
  2. VITAMIN D3 [Concomitant]
     Active Substance: CHOLECALCIFEROL
     Indication: VITAMIN D DEFICIENCY
     Dosage: 10000 IU, QD
     Route: 065
     Dates: start: 201511
  3. PINEWOOD LABS KETOPINE [Suspect]
     Active Substance: KETOCONAZOLE
     Indication: PRODUCT USED FOR UNKNOWN INDICATION
     Route: 065
     Dates: start: 2012
  4. DOVOBET [Concomitant]
     Active Substance: BETAMETHASONE\CALCIPOTRIENE
     Indication: PRODUCT USED FOR UNKNOWN INDICATION
     Route: 065
  5. DOVONEX [Suspect]
     Active Substance: CALCIPOTRIENE
     Indication: PRURITUS
     Route: 065
  6. QUETIAPINE. [Suspect]
     Active Substance: QUETIAPINE
     Indication: BIPOLAR I DISORDER
     Dosage: 600 MG, UNK,MODIFIED RELEASE.
     Route: 048
     Dates: start: 20120201

REACTIONS (7)
  - Pruritus [Recovering/Resolving]
  - Eczema [Not Recovered/Not Resolved]
  - Guttate psoriasis [Not Recovered/Not Resolved]
  - Vitamin D decreased [Unknown]
  - Dermatitis [Not Recovered/Not Resolved]
  - Blood cholesterol increased [Unknown]
  - Psoriasis [Unknown]

NARRATIVE: CASE EVENT DATE: 20120404
